FAERS Safety Report 7733944-3 (Version None)
Quarter: 2011Q3

REPORT INFORMATION
  Report Type: 
  Country: None (occurrence: None)
  Receive Date: 20110907
  Receipt Date: 20110824
  Transmission Date: 20111222
  Serious: Yes (Other)
  Sender: FDA-Public Use
  Company Number: FR-CELGENEUS-056-21880-11031181

PATIENT
  Sex: Male
  Weight: 86 kg

DRUGS (5)
  1. REVLIMID [Suspect]
     Indication: B-CELL LYMPHOMA
     Dosage: 10 MILLIGRAM
     Route: 048
     Dates: start: 20100603
  2. PREVISCAN [Concomitant]
     Route: 065
     Dates: start: 20000101
  3. PROPOFAN [Concomitant]
     Indication: PAIN
     Route: 065
     Dates: start: 20100921
  4. REVLIMID [Suspect]
     Dosage: 10 MILLIGRAM
     Route: 048
     Dates: start: 20110203, end: 20110222
  5. CRESTOR [Concomitant]
     Route: 065
     Dates: start: 20070101

REACTIONS (1)
  - SQUAMOUS CELL CARCINOMA OF SKIN [None]
